FAERS Safety Report 8601786-2 (Version None)
Quarter: 2012Q3

REPORT INFORMATION
  Report Type: 
  Country: None (occurrence: None)
  Receive Date: 20120817
  Receipt Date: 20120530
  Transmission Date: 20120928
  Serious: No
  Sender: FDA-Public Use
  Company Number: US-BRISTOL-MYERS SQUIBB COMPANY-16514390

PATIENT
  Age: 39 Year
  Sex: Female

DRUGS (4)
  1. ZOFRAN [Concomitant]
  2. SPRYCEL [Suspect]
     Dosage: FEB11-UNK,RESTARTED ON MAR12. DOSE REDUCED-TAB CUTTING TO HALF
     Dates: start: 20110201
  3. VICODIN [Concomitant]
  4. FLEXERIL [Concomitant]

REACTIONS (3)
  - WRONG TECHNIQUE IN DRUG USAGE PROCESS [None]
  - HEADACHE [None]
  - PAIN [None]
